FAERS Safety Report 4506856-6 (Version None)
Quarter: 2004Q4

REPORT INFORMATION
  Report Type: 
  Country: None (occurrence: None)
  Receive Date: 20041122
  Receipt Date: 20021025
  Transmission Date: 20050328
  Serious: Yes (Death, Hospitalization)
  Sender: FDA-Public Use
  Company Number: US-AMGEN-02100413

PATIENT
  Sex: Female

DRUGS (17)
  1. ENBREL [Suspect]
     Indication: RHEUMATOID ARTHRITIS
     Route: 058
     Dates: start: 20010701
  2. ENBREL [Suspect]
  3. PREDNISONE [Concomitant]
  4. COMBIVENT [Concomitant]
     Route: 054
  5. DIGOXIN [Concomitant]
     Route: 042
  6. SOLU-CORTEF [Concomitant]
     Route: 042
  7. INSULIN [Concomitant]
  8. NYSTATIN [Concomitant]
     Route: 061
  9. LOVENOX [Concomitant]
     Route: 058
  10. POTASSIUM CHLORIDE [Concomitant]
  11. DIAMOX [Concomitant]
  12. CAPTOPRIL [Concomitant]
  13. DOBUTAMINE [Concomitant]
  14. FLAGYL [Concomitant]
     Route: 042
  15. CEFEPIME [Concomitant]
     Route: 042
  16. ZITHROMAX [Concomitant]
  17. METHOTREXATE [Concomitant]

REACTIONS (8)
  - ACUTE RESPIRATORY DISTRESS SYNDROME [None]
  - ENTEROCOCCAL BACTERAEMIA [None]
  - GUILLAIN-BARRE SYNDROME [None]
  - MYELITIS TRANSVERSE [None]
  - PNEUMONIA [None]
  - RENAL FAILURE ACUTE [None]
  - RESPIRATORY FAILURE [None]
  - SEPTIC SHOCK [None]
